FAERS Safety Report 4517412-8 (Version None)
Quarter: 2004Q4

REPORT INFORMATION
  Report Type: 
  Country: None (occurrence: None)
  Receive Date: 20041022
  Receipt Date: 20040813
  Transmission Date: 20050328
  Serious: No
  Sender: FDA-Public Use
  Company Number: 800094

PATIENT
  Age: 59 Year
  Sex: Male
  Weight: 90.7194 kg

DRUGS (24)
  1. EXTRANEAL [Suspect]
     Indication: PERITONEAL DIALYSIS
     Dosage: 2 L; ONCE; INTRAPERITONEAL
     Route: 033
     Dates: start: 20040813, end: 20040813
  2. NPH INSULIN [Concomitant]
  3. INSULIN BASAL [Concomitant]
  4. INSULIN LISPRO [Concomitant]
  5. COUMADIN [Concomitant]
  6. EPOGEN [Concomitant]
  7. ACTIGALL [Concomitant]
  8. RENAGEL [Concomitant]
  9. NEPHRO-VITE RX [Concomitant]
  10. DIGOXIN [Concomitant]
  11. PROTONIX [Concomitant]
  12. PRAVACHOL [Concomitant]
  13. CELEXA [Concomitant]
  14. LOPRESSOR [Concomitant]
  15. PROCARDIA [Concomitant]
  16. AMBIEN [Concomitant]
  17. VICODIN [Concomitant]
  18. ASPIRIN [Concomitant]
  19. COLACE [Concomitant]
  20. NEURONTIN [Concomitant]
  21. FLOMAX ^CSL^ [Concomitant]
  22. DURAGESIC [Concomitant]
  23. MIRALAX [Concomitant]
  24. DIANEAL [Concomitant]

REACTIONS (1)
  - PERITONITIS [None]
